FAERS Safety Report 15149715 (Version 1)
Quarter: 2018Q3

REPORT INFORMATION
  Report Type: Spontaneous
  Country: US (occurrence: US)
  Receive Date: 20180619
  Receipt Date: 20180619
  Transmission Date: 20181010
  Serious: No
  Sender: FDA-Public Use
  Company Number: None

PATIENT
  Age: 61 Year
  Sex: Male

DRUGS (4)
  1. LIPITOR [Concomitant]
     Active Substance: ATORVASTATIN CALCIUM
  2. PREDNISONE. [Concomitant]
     Active Substance: PREDNISONE
  3. ZYTIGA TAB 500MG [Suspect]
     Active Substance: ABIRATERONE ACETATE
  4. FIRMAGON [Concomitant]
     Active Substance: DEGARELIX ACETATE

REACTIONS (1)
  - Fatigue [None]

NARRATIVE: CASE EVENT DATE: 20180319
